FAERS Safety Report 16138192 (Version 1)
Quarter: 2019Q1

REPORT INFORMATION
  Report Type: Spontaneous
  Country: FR (occurrence: FR)
  Receive Date: 20190330
  Receipt Date: 20190330
  Transmission Date: 20190418
  Serious: Yes (Other)
  Sender: FDA-Public Use
  Company Number: FR-ACCORD-116717

PATIENT
  Age: 78 Year
  Sex: Male

DRUGS (8)
  1. FUROSEMIDE. [Suspect]
     Active Substance: FUROSEMIDE
     Indication: FLUID OVERLOAD
     Route: 048
     Dates: start: 20181130, end: 20181210
  2. RAMIPRIL. [Suspect]
     Active Substance: RAMIPRIL
     Indication: MYOCARDIAL ISCHAEMIA
     Route: 048
     Dates: start: 20181204, end: 20181210
  3. AMLODIPINE [Concomitant]
     Active Substance: AMLODIPINE BESYLATE
     Indication: HYPERTENSION
     Route: 048
     Dates: start: 20181201
  4. BISOPROLOL [Concomitant]
     Active Substance: BISOPROLOL
     Indication: ARRHYTHMIA
     Route: 048
     Dates: start: 20181128
  5. OXYCODONE [Concomitant]
     Active Substance: OXYCODONE
     Indication: PAIN
     Route: 048
     Dates: start: 20181206, end: 20181213
  6. AMOXICILLIN. [Suspect]
     Active Substance: AMOXICILLIN
     Indication: ENDOCARDITIS
     Route: 042
     Dates: start: 20181126, end: 20181211
  7. RIFAMPICIN [Concomitant]
     Active Substance: RIFAMPIN
     Indication: ENDOCARDITIS
     Route: 048
     Dates: start: 20181207
  8. AMIODARONE [Concomitant]
     Active Substance: AMIODARONE
     Indication: ARRHYTHMIA
     Route: 048
     Dates: start: 20181204

REACTIONS (1)
  - Acute kidney injury [Recovered/Resolved]

NARRATIVE: CASE EVENT DATE: 20181210
